FAERS Safety Report 17519180 (Version 1)
Quarter: 2020Q1

REPORT INFORMATION
  Report Type: Spontaneous
  Country: US (occurrence: US)
  Receive Date: 20200310
  Receipt Date: 20200310
  Transmission Date: 20200409
  Serious: Yes (Other)
  Sender: FDA-Public Use
  Company Number: US-APOTEX-2020AP008487

PATIENT
  Age: 5 Year
  Sex: Female

DRUGS (2)
  1. IMIQUIMOD. [Suspect]
     Active Substance: IMIQUIMOD
     Dosage: UNK UNK, T.I.W
     Route: 061
  2. IMIQUIMOD. [Suspect]
     Active Substance: IMIQUIMOD
     Indication: MOLLUSCUM CONTAGIOSUM
     Dosage: UNK UNK, Q.H.S. (FOR TWO WEEKS)
     Route: 061

REACTIONS (1)
  - Pemphigus [Recovered/Resolved]
